FAERS Safety Report 6269042-8 (Version None)
Quarter: 2009Q3

REPORT INFORMATION
  Report Type: 
  Country: None (occurrence: None)
  Receive Date: 20090715
  Receipt Date: 20090706
  Transmission Date: 20100115
  Serious: Yes (Other)
  Sender: FDA-Public Use
  Company Number: B0582989A

PATIENT
  Age: 85 Year
  Sex: Female

DRUGS (2)
  1. VALTREX [Suspect]
     Indication: HERPES ZOSTER
     Route: 048
  2. LOXONIN [Concomitant]
     Indication: ANALGESIA
     Route: 065

REACTIONS (4)
  - DEPRESSED LEVEL OF CONSCIOUSNESS [None]
  - RENAL FAILURE ACUTE [None]
  - TONIC CONVULSION [None]
  - TOXIC ENCEPHALOPATHY [None]
